FAERS Safety Report 12786707 (Version 1)
Quarter: 2016Q3

REPORT INFORMATION
  Report Type: Spontaneous
  Country: US (occurrence: US)
  Receive Date: 20160927
  Receipt Date: 20160927
  Transmission Date: 20161109
  Serious: Yes (Hospitalization, Other)
  Sender: FDA-Public Use
  Company Number: US-SAOL THERAPEUTICS-2016SAO00635

PATIENT
  Age: 52 Year
  Sex: Female

DRUGS (13)
  1. CLONIDINE. [Suspect]
     Active Substance: CLONIDINE
     Dosage: 663.07 ?G\DAY
     Route: 037
     Dates: start: 20121022
  2. BACLOFEN. [Suspect]
     Active Substance: BACLOFEN
     Indication: BACK PAIN
     Dosage: 1.876 MG, \DAY
     Route: 037
     Dates: start: 20121022
  3. BACLOFEN. [Suspect]
     Active Substance: BACLOFEN
     Indication: PAIN
     Dosage: 0.199 MG, \DAY
     Route: 037
     Dates: start: 20121023
  4. DILAUDID [Suspect]
     Active Substance: HYDROMORPHONE HYDROCHLORIDE
     Dosage: 9.384 MG\DAY
     Route: 037
     Dates: start: 20121022
  5. BUPIVACAINE. [Suspect]
     Active Substance: BUPIVACAINE
     Dosage: 4.795 MG, \DAY
     Route: 037
     Dates: start: 20121022
  6. DILAUDID [Suspect]
     Active Substance: HYDROMORPHONE HYDROCHLORIDE
     Dosage: 1.997 MG\DAY
     Route: 037
     Dates: start: 20121022
  7. DILAUDID [Suspect]
     Active Substance: HYDROMORPHONE HYDROCHLORIDE
     Dosage: 0.999 MG, \DAY
     Route: 037
     Dates: start: 20121023
  8. BACLOFEN. [Suspect]
     Active Substance: BACLOFEN
     Indication: POST LAMINECTOMY SYNDROME
  9. BACLOFEN. [Suspect]
     Active Substance: BACLOFEN
     Indication: SPINAL PAIN
     Dosage: 0.399 MG\DAY
     Route: 037
     Dates: start: 20121022
  10. CLONIDINE. [Suspect]
     Active Substance: CLONIDINE
     Dosage: 119.88 ?G\DAY
     Route: 037
     Dates: start: 20121022
  11. CLONIDINE. [Suspect]
     Active Substance: CLONIDINE
     Dosage: 59.94 ?G, \DAY
     Route: 037
     Dates: start: 20121023
  12. BUPIVACAINE. [Suspect]
     Active Substance: BUPIVACAINE
     Dosage: 22.523 MG\DAY
     Route: 037
     Dates: start: 20121022
  13. BUPIVACAINE. [Suspect]
     Active Substance: BUPIVACAINE
     Dosage: 2.398 MG, \DAY
     Route: 037
     Dates: start: 20121023

REACTIONS (7)
  - Device infusion issue [Recovered/Resolved]
  - Incontinence [Recovered/Resolved]
  - Accidental overdose [Recovered/Resolved]
  - Medication error [Recovered/Resolved]
  - Respiratory depression [Recovered/Resolved]
  - Lethargy [Recovered/Resolved]
  - Off label use [Recovered/Resolved]

NARRATIVE: CASE EVENT DATE: 201210
